FAERS Safety Report 4309055-6 (Version None)
Quarter: 2004Q1

REPORT INFORMATION
  Report Type: 
  Country: None (occurrence: None)
  Receive Date: 20040302
  Receipt Date: 20040205
  Transmission Date: 20041129
  Serious: Yes (Life-Threatening)
  Sender: FDA-Public Use
  Company Number: 200410279JP

PATIENT
  Age: 74 Year
  Sex: Male
  Weight: 60 kg

DRUGS (8)
  1. LASIX [Suspect]
     Indication: OEDEMA DUE TO RENAL DISEASE
     Route: 048
     Dates: start: 20031108, end: 20040105
  2. HERBESSER ^TANABE^ [Suspect]
     Indication: HYPERTENSION
     Route: 048
     Dates: start: 20031108, end: 20031222
  3. ALLOPURINOL [Suspect]
     Indication: HYPERURICAEMIA
     Route: 048
     Dates: start: 20031116, end: 20031222
  4. ADALAT [Concomitant]
     Indication: HYPERTENSION
     Route: 048
     Dates: start: 20031108, end: 20031222
  5. LIPITOR [Concomitant]
     Indication: HYPERCHOLESTEROLAEMIA
     Route: 048
     Dates: start: 20031108, end: 20031222
  6. GASTER [Concomitant]
     Indication: GASTRITIS
     Route: 048
     Dates: start: 20031108
  7. CARDENALIN [Concomitant]
     Indication: HYPERTENSION
     Route: 048
     Dates: start: 20031108, end: 20040121
  8. GLIMICRON [Concomitant]
     Indication: DIABETES MELLITUS
     Route: 048
     Dates: start: 20031120, end: 20031222

REACTIONS (10)
  - DRUG ERUPTION [None]
  - DRUG HYPERSENSITIVITY [None]
  - FACE OEDEMA [None]
  - GENERALISED ERYTHEMA [None]
  - LIVER DISORDER [None]
  - LYMPHADENOPATHY [None]
  - OEDEMA PERIPHERAL [None]
  - PURPURA [None]
  - PYREXIA [None]
  - WHITE BLOOD CELL COUNT INCREASED [None]
